FAERS Safety Report 7529766-9 (Version None)
Quarter: 2011Q2

REPORT INFORMATION
  Report Type: 
  Country: None (occurrence: None)
  Receive Date: 20110531
  Receipt Date: 20110526
  Transmission Date: 20111010
  Serious: Yes (Other)
  Sender: FDA-Public Use
  Company Number: 2009SP023502

PATIENT
  Age: 27 Year
  Sex: Female
  Weight: 90.7194 kg

DRUGS (3)
  1. NUVARING [Suspect]
     Indication: CONTRACEPTION
     Dosage: ;VAG
     Route: 067
     Dates: start: 20020301, end: 20030908
  2. NUVARING [Suspect]
     Indication: MENSTRUATION IRREGULAR
     Dosage: ;VAG
     Route: 067
     Dates: start: 20020301, end: 20030908
  3. PHENTERMINE [Concomitant]

REACTIONS (39)
  - DEEP VEIN THROMBOSIS [None]
  - GASTRIC BYPASS [None]
  - DYSPNOEA [None]
  - LUNG DISORDER [None]
  - PLACENTAL NECROSIS [None]
  - HAEMORRHAGE [None]
  - ANXIETY [None]
  - COSTOCHONDRITIS [None]
  - PLEURISY [None]
  - HYPOTHYROIDISM [None]
  - BLOOD DISORDER [None]
  - PHLEBITIS [None]
  - MUSCULOSKELETAL STIFFNESS [None]
  - RETAINED PLACENTA OR MEMBRANES [None]
  - NECROSIS [None]
  - VARICOSE VEIN [None]
  - UMBILICAL CORD ABNORMALITY [None]
  - OVARIAN CYST [None]
  - CHEST PAIN [None]
  - JOINT INJURY [None]
  - PAIN IN EXTREMITY [None]
  - VENOUS OCCLUSION [None]
  - VAGINAL HAEMORRHAGE [None]
  - POSTPARTUM HAEMORRHAGE [None]
  - WHITE BLOOD CELL COUNT INCREASED [None]
  - CHOKING [None]
  - CHEST DISCOMFORT [None]
  - PULMONARY EMBOLISM [None]
  - FALL [None]
  - FACTOR V LEIDEN MUTATION [None]
  - BLIGHTED OVUM [None]
  - NEPHROLITHIASIS [None]
  - THROMBOPHLEBITIS [None]
  - GASTROOESOPHAGEAL REFLUX DISEASE [None]
  - COAGULOPATHY [None]
  - VEIN DISORDER [None]
  - OEDEMA PERIPHERAL [None]
  - KIDNEY INFECTION [None]
  - HEAD INJURY [None]
